FAERS Safety Report 7276229-4 (Version None)
Quarter: 2011Q1

REPORT INFORMATION
  Report Type: 
  Country: None (occurrence: None)
  Receive Date: 20110204
  Receipt Date: 20110201
  Transmission Date: 20110831
  Serious: Yes (Death)
  Sender: FDA-Public Use
  Company Number: PHHY2011DK08058

PATIENT
  Sex: Male

DRUGS (2)
  1. LEPONEX [Suspect]
     Dosage: 300 MG, BID
     Dates: start: 20070601
  2. TEMESTA [Concomitant]
     Dosage: 1.5 MG, UNK

REACTIONS (1)
  - DEATH [None]
